FAERS Safety Report 6882927-4 (Version None)
Quarter: 2010Q3

REPORT INFORMATION
  Report Type: 
  Country: None (occurrence: None)
  Receive Date: 20100729
  Receipt Date: 20100719
  Transmission Date: 20110219
  Serious: Yes (Other)
  Sender: FDA-Public Use
  Company Number: GB-PFIZER INC-2010082780

PATIENT
  Age: 82 Year
  Sex: Female

DRUGS (8)
  1. LIPITOR [Suspect]
     Dosage: UNK
  2. QUININE [Concomitant]
     Dosage: 300 UNK, UNK
  3. ACETYLSALICYLIC ACID [Concomitant]
     Dosage: 75 UNK, UNK
  4. PERSANTINE [Concomitant]
     Dosage: 200 UNK, UNK
  5. ADALAT [Concomitant]
     Dosage: 30 UNK, UNK
  6. PRAVASTATIN [Concomitant]
     Dosage: 40 UNK, UNK
  7. NITROGLYCERIN [Concomitant]
  8. VISCOTEARS [Concomitant]
     Indication: DRY EYE

REACTIONS (5)
  - BLINDNESS [None]
  - CONTUSION [None]
  - DEAFNESS [None]
  - MEMORY IMPAIRMENT [None]
  - PRURITUS [None]
